FAERS Safety Report 5992018-2 (Version None)
Quarter: 2008Q4

REPORT INFORMATION
  Report Type: 
  Country: None (occurrence: None)
  Receive Date: 20081211
  Receipt Date: 20081205
  Transmission Date: 20090506
  Serious: Yes (Other)
  Sender: FDA-Public Use
  Company Number: JP-B.I. PHARMACEUTICALS,INC./RIDGEFIELD-2008-DE-07254GD

PATIENT
  Sex: Female

DRUGS (3)
  1. PERSANTINE [Suspect]
     Indication: ANTICOAGULANT THERAPY
     Route: 065
  2. ACTIVASE [Suspect]
     Indication: MYOCARDIAL INFARCTION
     Route: 065
  3. ASPIRIN [Suspect]
     Indication: ANTICOAGULANT THERAPY
     Route: 065

REACTIONS (2)
  - DRUG INEFFECTIVE [None]
  - MYOCARDIAL INFARCTION [None]
